FAERS Safety Report 6845085-8 (Version None)
Quarter: 2010Q3

REPORT INFORMATION
  Report Type: 
  Country: None (occurrence: None)
  Receive Date: 20100715
  Receipt Date: 20070809
  Transmission Date: 20110219
  Serious: No
  Sender: FDA-Public Use
  Company Number: US-PFIZER INC-2007067753

PATIENT
  Sex: Female

DRUGS (2)
  1. CHANTIX [Suspect]
     Indication: SMOKING CESSATION THERAPY
     Dates: start: 20070729
  2. ETHINYL ESTRADIOL W/NORGESTREL [Concomitant]

REACTIONS (9)
  - ABNORMAL BEHAVIOUR [None]
  - CONFUSIONAL STATE [None]
  - DRUG INTOLERANCE [None]
  - EXPRESSIVE LANGUAGE DISORDER [None]
  - FEELING ABNORMAL [None]
  - HYPERSOMNIA [None]
  - LETHARGY [None]
  - NAUSEA [None]
  - THINKING ABNORMAL [None]
